FAERS Safety Report 9999753 (Version 2)
Quarter: 2014Q1

REPORT INFORMATION
  Report Type: Spontaneous
  Country: US (occurrence: US)
  Receive Date: 20140312
  Receipt Date: 20140313
  Transmission Date: 20141002
  Serious: No
  Sender: FDA-Public Use
  Company Number: US-009507513-1403USA000847

PATIENT
  Age: 79 Year
  Sex: Female
  Weight: 86.17 kg

DRUGS (2)
  1. OXYTROL FOR WOMEN [Suspect]
     Indication: URINARY INCONTINENCE
     Dosage: UNK, UNKNOWN
     Route: 062
     Dates: start: 20130613, end: 20140114
  2. METFORMIN [Concomitant]
     Indication: DIABETES MELLITUS
     Dosage: UNK, QD

REACTIONS (11)
  - Cystitis [Unknown]
  - Fungal infection [Unknown]
  - Vulvovaginal pruritus [Unknown]
  - Scab [Unknown]
  - Application site vesicles [Not Recovered/Not Resolved]
  - Application site pain [Not Recovered/Not Resolved]
  - Scar [Not Recovered/Not Resolved]
  - Burning sensation [Recovered/Resolved]
  - Erythema [Unknown]
  - Application site pruritus [Recovered/Resolved]
  - Off label use [Unknown]
